FAERS Safety Report 5888841-5 (Version None)
Quarter: 2008Q3

REPORT INFORMATION
  Report Type: 
  Country: None (occurrence: None)
  Receive Date: 20080917
  Receipt Date: 20080917
  Transmission Date: 20090109
  Serious: Yes (Hospitalization)
  Sender: FDA-Public Use
  Company Number: None

PATIENT
  Age: 32 Year
  Sex: Female
  Weight: 55.7924 kg

DRUGS (2)
  1. CIPROFLOXACIN [Suspect]
     Indication: URINARY TRACT INFECTION
     Dosage: 14 TWICE A DAY PO
     Route: 048
     Dates: start: 20080225, end: 20080913
  2. CIPROFLOXACIN HCL [Suspect]
     Indication: URINARY TRACT INFECTION
     Dosage: 28 TWICE A DAY PO
     Route: 048
     Dates: start: 20080531, end: 20080628

REACTIONS (2)
  - GASTROINTESTINAL PAIN [None]
  - PYREXIA [None]
